FAERS Safety Report 18593734 (Version 7)
Quarter: 2025Q1

REPORT INFORMATION
  Report Type: Report from Study
  Country: US (occurrence: US)
  Receive Date: 20201208
  Receipt Date: 20250306
  Transmission Date: 20250409
  Serious: Yes (Hospitalization, Other)
  Sender: TAKEDA
  Company Number: US-TAKEDA-2019TUS045114

PATIENT
  Sex: Female

DRUGS (38)
  1. PONATINIB [Suspect]
     Active Substance: PONATINIB
     Indication: Chronic myeloid leukaemia
     Dosage: 15 MILLIGRAM, QD
     Dates: start: 201402
  2. PONATINIB [Suspect]
     Active Substance: PONATINIB
     Dosage: 15 MILLIGRAM, QD
  3. PONATINIB [Suspect]
     Active Substance: PONATINIB
     Dosage: 15 MILLIGRAM, QD
  4. PONATINIB [Suspect]
     Active Substance: PONATINIB
     Dosage: 15 MILLIGRAM, QD
  5. PONATINIB [Suspect]
     Active Substance: PONATINIB
     Dosage: 15 MILLIGRAM, QD
  6. IMBRUVICA [Concomitant]
     Active Substance: IBRUTINIB
  7. VISTARIL [Concomitant]
     Active Substance: HYDROXYZINE PAMOATE
  8. ACETAMINOPHEN [Concomitant]
     Active Substance: ACETAMINOPHEN
  9. AFRIN [Concomitant]
     Active Substance: OXYMETAZOLINE HYDROCHLORIDE
  10. BREO ELLIPTA [Concomitant]
     Active Substance: FLUTICASONE FUROATE\VILANTEROL TRIFENATATE
  11. LOTRISONE [Concomitant]
     Active Substance: BETAMETHASONE DIPROPIONATE\CLOTRIMAZOLE
  12. CEFDINIR [Concomitant]
     Active Substance: CEFDINIR
  13. DIPHENHYDRAMINE HYDROCHLORIDE [Concomitant]
     Active Substance: DIPHENHYDRAMINE HYDROCHLORIDE
  14. Goody^s extra strength [Concomitant]
  15. NUCYNTA ER [Concomitant]
     Active Substance: TAPENTADOL HYDROCHLORIDE
  16. LYRICA [Concomitant]
     Active Substance: PREGABALIN
  17. TOPAMAX [Concomitant]
     Active Substance: TOPIRAMATE
  18. BACLOFEN [Concomitant]
     Active Substance: BACLOFEN
  19. LAMICTAL [Concomitant]
     Active Substance: LAMOTRIGINE
  20. ZANAFLEX [Concomitant]
     Active Substance: TIZANIDINE HYDROCHLORIDE
  21. AMBIEN [Concomitant]
     Active Substance: ZOLPIDEM TARTRATE
  22. LINZESS [Concomitant]
     Active Substance: LINACLOTIDE
  23. CHLORTHALIDONE [Concomitant]
     Active Substance: CHLORTHALIDONE
  24. PHENERGAN [Concomitant]
     Active Substance: PROMETHAZINE HYDROCHLORIDE
  25. ALDACTONE [Concomitant]
     Active Substance: SPIRONOLACTONE
  26. METFORMIN HYDROCHLORIDE [Concomitant]
     Active Substance: METFORMIN HYDROCHLORIDE
  27. ALPRAZOLAM [Concomitant]
     Active Substance: ALPRAZOLAM
  28. COLACE [Concomitant]
     Active Substance: DOCUSATE SODIUM
  29. FOLIC ACID [Concomitant]
     Active Substance: FOLIC ACID
  30. VITAMIN B12 [Concomitant]
     Active Substance: CYANOCOBALAMIN
  31. FENTANYL CITRATE [Concomitant]
     Active Substance: FENTANYL CITRATE
  32. IBUPROFEN [Concomitant]
     Active Substance: IBUPROFEN
  33. ZOFRAN [Concomitant]
     Active Substance: ONDANSETRON HYDROCHLORIDE
  34. OXYBUTYNIN CHLORIDE [Concomitant]
     Active Substance: OXYBUTYNIN CHLORIDE
  35. VRAYLAR [Concomitant]
     Active Substance: CARIPRAZINE
  36. POTASSIUM CHLORIDE [Concomitant]
     Active Substance: POTASSIUM CHLORIDE
  37. Nasalcare [Concomitant]
  38. ASTELIN [Concomitant]
     Active Substance: AZELASTINE HYDROCHLORIDE

REACTIONS (16)
  - Impaired gastric emptying [Unknown]
  - Acute polyneuropathy [Unknown]
  - Neuropathy peripheral [Unknown]
  - Sepsis [Unknown]
  - Pneumonia [Unknown]
  - Joint stiffness [Unknown]
  - Chronic sinusitis [Unknown]
  - Product dose omission issue [Unknown]
  - Dysphagia [Unknown]
  - Bone pain [Unknown]
  - Myalgia [Unknown]
  - Nausea [Unknown]
  - Fatigue [Unknown]
  - Constipation [Unknown]
  - Arthralgia [Unknown]
  - Urinary tract infection [Unknown]
